FAERS Safety Report 21385740 (Version 8)
Quarter: 2023Q4

REPORT INFORMATION
  Report Type: Report from Study
  Country: US (occurrence: US)
  Receive Date: 20220928
  Receipt Date: 20231004
  Transmission Date: 20240110
  Serious: No
  Sender: FDA-Public Use
  Company Number: US-NOVARTISTESTPH-NVSC2022US219106

PATIENT
  Sex: Female

DRUGS (1)
  1. XIIDRA [Suspect]
     Active Substance: LIFITEGRAST
     Indication: Product used for unknown indication
     Dosage: UNK
     Route: 047

REACTIONS (23)
  - Anxiety [Unknown]
  - Migraine [Unknown]
  - Photophobia [Unknown]
  - Hypoaesthesia [Unknown]
  - Hypertension [Unknown]
  - COVID-19 [Unknown]
  - Allergy to plants [Unknown]
  - Allergy to animal [Unknown]
  - Seasonal allergy [Unknown]
  - Nerve compression [Unknown]
  - Sinusitis [Unknown]
  - Ear infection [Unknown]
  - Abdominal pain [Unknown]
  - Weight decreased [Unknown]
  - Visual impairment [Unknown]
  - Osteoarthritis [Unknown]
  - Brain fog [Unknown]
  - Pain in extremity [Unknown]
  - Post-traumatic stress disorder [Unknown]
  - Insomnia [Unknown]
  - Stress [Unknown]
  - Vision blurred [Unknown]
  - Dyspnoea [Unknown]
